FAERS Safety Report 7290015-0 (Version None)
Quarter: 2011Q1

REPORT INFORMATION
  Report Type: 
  Country: None (occurrence: None)
  Receive Date: 20110209
  Receipt Date: 20110209
  Transmission Date: 20110831
  Serious: No
  Sender: FDA-Public Use
  Company Number: None

PATIENT
  Sex: Female
  Weight: 60.3284 kg

DRUGS (4)
  1. NOVOLOG [Concomitant]
  2. LEVEMIR [Concomitant]
  3. CEFUROXIME [Suspect]
     Indication: SINUSITIS
     Dosage: 500 MG TWICE A DAY PO
     Route: 048
     Dates: start: 20101228, end: 20101230
  4. SIMVASTATIN [Concomitant]

REACTIONS (4)
  - DECREASED ACTIVITY [None]
  - FATIGUE [None]
  - ASTHENIA [None]
  - SOMNOLENCE [None]
